FAERS Safety Report 8426185-8 (Version None)
Quarter: 2012Q2

REPORT INFORMATION
  Report Type: 
  Country: None (occurrence: None)
  Receive Date: 20120323
  Receipt Date: 20110209
  Transmission Date: 20120825
  Serious: Yes (Hospitalization)
  Sender: FDA-Public Use
  Company Number: 163-21880-11021567

PATIENT
  Age: 71 Year
  Sex: Male

DRUGS (11)
  1. CALCIUM CARBONATE [Concomitant]
  2. TERAZOSIN HCL [Concomitant]
  3. MORPHINE [Concomitant]
  4. OMEPRAZOLE [Concomitant]
  5. REVLIMID [Suspect]
     Indication: MULTIPLE MYELOMA
     Dosage: 5 MG, DAILY, PO
     Route: 048
     Dates: start: 20090701
  6. MULTI-VITAMINS [Concomitant]
  7. METOPROLOL TARTRATE [Concomitant]
  8. CULTURELLE [Concomitant]
  9. HYDROMORPHONE [Concomitant]
  10. DEXAMETHASONE [Concomitant]
  11. ZOLPIDEM [Concomitant]

REACTIONS (3)
  - PULMONARY EMBOLISM [None]
  - FATIGUE [None]
  - DEEP VEIN THROMBOSIS [None]
